FAERS Safety Report 4881260-X (Version None)
Quarter: 2005Q4

REPORT INFORMATION
  Report Type: 
  Country: None (occurrence: None)
  Receive Date: 20051212
  Receipt Date: 20051027
  Transmission Date: 20060501
  Serious: Yes (Other)
  Sender: FDA-Public Use
  Company Number: 2005-02238

PATIENT
  Age: 80 Year
  Sex: Male
  Weight: 88.9 kg

DRUGS (1)
  1. VELCADE [Suspect]
     Indication: MULTIPLE MYELOMA
     Dosage: 2.73 MG, IV BOLUS
     Route: 040
     Dates: start: 20051011, end: 20051020

REACTIONS (1)
  - PLATELET COUNT DECREASED [None]
